FAERS Safety Report 7122944-2 (Version None)
Quarter: 2010Q4

REPORT INFORMATION
  Report Type: 
  Country: None (occurrence: None)
  Receive Date: 20101124
  Receipt Date: 20101111
  Transmission Date: 20110411
  Serious: Yes (Hospitalization)
  Sender: FDA-Public Use
  Company Number: IT-AMGEN-ITACT2010004197

PATIENT

DRUGS (2)
  1. DARBEPOETIN ALFA [Suspect]
     Indication: RENAL FAILURE CHRONIC
     Dosage: 20 A?G, QWK
     Route: 058
     Dates: start: 20091204
  2. COUMADIN [Suspect]
     Dosage: UNK
     Dates: end: 20100906

REACTIONS (2)
  - INTERNATIONAL NORMALISED RATIO [None]
  - INTERNATIONAL NORMALISED RATIO INCREASED [None]
